FAERS Safety Report 9156750 (Version 1)
Quarter: 2013Q1

REPORT INFORMATION
  Report Type: Spontaneous
  Country: US (occurrence: None)
  Receive Date: 20130308
  Receipt Date: 20130308
  Transmission Date: 20140127
  Serious: Yes (Other)
  Sender: FDA-Public Use
  Company Number: None

PATIENT
  Sex: Female
  Weight: 63.5 kg

DRUGS (1)
  1. GUANFACINE [Suspect]
     Indication: ATTENTION DEFICIT/HYPERACTIVITY DISORDER
     Dosage: EREX (GUANFACINE) 1/4-1 MG INCREASE TO BID ORAL
     Route: 048
     Dates: start: 200603, end: 200605

REACTIONS (2)
  - Depression [None]
  - Irritability [None]
